FAERS Safety Report 7256584-1 (Version None)
Quarter: 2011Q1

REPORT INFORMATION
  Report Type: 
  Country: None (occurrence: None)
  Receive Date: 20110129
  Receipt Date: 20100721
  Transmission Date: 20110831
  Serious: No
  Sender: FDA-Public Use
  Company Number: US-ABBOTT-10P-163-0659172-00

PATIENT
  Age: 30 Year
  Sex: Male

DRUGS (15)
  1. METFORMIN [Concomitant]
     Indication: DIABETES MELLITUS
  2. TEGRETOL [Concomitant]
     Indication: DEPRESSION
  3. HUMIRA [Suspect]
     Indication: CROHN'S DISEASE
     Dosage: LOADING DOSE
     Dates: start: 20100630
  4. CYMBALTA [Concomitant]
     Indication: BIPOLAR DISORDER
  5. RISPIDOL [Concomitant]
     Indication: DEPRESSION
  6. TEGRETOL [Concomitant]
     Indication: BIPOLAR DISORDER
  7. AMITRIPTYLINE HCL [Concomitant]
     Indication: INSOMNIA
  8. AMITRIPTYLINE HCL [Concomitant]
     Indication: PAIN
  9. PENTASA [Concomitant]
     Indication: CROHN'S DISEASE
     Dosage: 2 CAPS, FOUR TIMES DAILY
  10. IMITREX [Concomitant]
     Indication: MIGRAINE
  11. HUMIRA [Suspect]
  12. AMITRIPTYLINE HCL [Concomitant]
     Indication: CROHN'S DISEASE
     Dosage: AT BEDTIME
  13. CYMBALTA [Concomitant]
     Indication: DEPRESSION
  14. RISPIDOL [Concomitant]
     Indication: BIPOLAR DISORDER
  15. LISINOPRIL [Concomitant]
     Indication: HYPERTENSION

REACTIONS (6)
  - DIZZINESS [None]
  - NAUSEA [None]
  - BALANCE DISORDER [None]
  - FEELING JITTERY [None]
  - INJECTION SITE HAEMATOMA [None]
  - BRONCHITIS [None]
